FAERS Safety Report 7106159-X (Version None)
Quarter: 2010Q4

REPORT INFORMATION
  Report Type: 
  Country: None (occurrence: None)
  Receive Date: 20101116
  Receipt Date: 20101104
  Transmission Date: 20110411
  Serious: Yes (Hospitalization)
  Sender: FDA-Public Use
  Company Number: FR-GENENTECH-306881

PATIENT
  Sex: Female
  Weight: 55 kg

DRUGS (5)
  1. XOLAIR [Suspect]
     Indication: ASTHMA
     Dosage: 375 MG, Q2W
     Dates: start: 20091001, end: 20100901
  2. FLIXOTIDE [Concomitant]
     Indication: PRODUCT USED FOR UNKNOWN INDICATION
  3. FORADIL [Concomitant]
     Indication: PRODUCT USED FOR UNKNOWN INDICATION
  4. VENTOLIN [Concomitant]
     Indication: PRODUCT USED FOR UNKNOWN INDICATION
  5. SINGULAIR [Concomitant]
     Indication: PRODUCT USED FOR UNKNOWN INDICATION

REACTIONS (5)
  - BLOOD IMMUNOGLOBULIN E INCREASED [None]
  - LYMPHADENOPATHY [None]
  - PARAESTHESIA [None]
  - URTICARIA [None]
  - VIITH NERVE PARALYSIS [None]
